FAERS Safety Report 18994702 (Version 1)
Quarter: 2021Q1

REPORT INFORMATION
  Report Type: Spontaneous
  Country: US (occurrence: US)
  Receive Date: 20210311
  Receipt Date: 20210311
  Transmission Date: 20210420
  Serious: No
  Sender: FDA-Public Use
  Company Number: US-APOTEX-2020AP019766

PATIENT
  Sex: Female

DRUGS (2)
  1. TRAZODONE HYDROCHLORIDE. [Suspect]
     Active Substance: TRAZODONE HYDROCHLORIDE
     Dosage: 1/4 DOSE, QD
     Route: 065
  2. TRAZODONE HYDROCHLORIDE. [Suspect]
     Active Substance: TRAZODONE HYDROCHLORIDE
     Indication: PRODUCT USED FOR UNKNOWN INDICATION
     Dosage: 1/2 DOSE, QD
     Route: 065

REACTIONS (4)
  - Incorrect dose administered [Unknown]
  - Product physical issue [Unknown]
  - Wrong technique in product usage process [Unknown]
  - Somnolence [Unknown]

NARRATIVE: CASE EVENT DATE: 20201007
